FAERS Safety Report 4802114-0 (Version None)
Quarter: 2005Q4

REPORT INFORMATION
  Report Type: 
  Country: None (occurrence: None)
  Receive Date: 20051012
  Receipt Date: 20050928
  Transmission Date: 20060501
  Serious: Yes (Disabling)
  Sender: FDA-Public Use
  Company Number: 200408192

PATIENT
  Age: 56 Year
  Sex: Female

DRUGS (30)
  1. BOTOX [Suspect]
     Indication: BLEPHAROSPASM
     Dates: start: 19950101, end: 20010101
  2. BOTOX [Suspect]
     Indication: FACIAL SPASM
     Dates: start: 19950101, end: 20010101
  3. BOTOX [Suspect]
     Indication: BLEPHAROSPASM
     Dosage: 35 UNITS ONCE IM
     Route: 030
     Dates: start: 20020228
  4. BOTOX [Suspect]
     Indication: FACIAL SPASM
     Dosage: 35 UNITS ONCE IM
     Route: 030
     Dates: start: 20020228
  5. BOTOX [Concomitant]
     Indication: BLEPHAROSPASM
     Dosage: 37.5 UNITS ONCE IM
     Route: 030
     Dates: start: 20020813
  6. BOTOX [Concomitant]
     Indication: FACIAL SPASM
     Dosage: 37.5 UNITS ONCE IM
     Route: 030
     Dates: start: 20020813
  7. CELEBREX [Concomitant]
  8. PREVACID [Concomitant]
  9. ACIPHEX [Concomitant]
  10. VALTREX [Concomitant]
  11. PREDNISONE TAB [Concomitant]
  12. PRILOSEC [Concomitant]
  13. ACYCLOVIR [Concomitant]
  14. ALPRAZOLAM [Concomitant]
  15. HYOSCYAMINE [Concomitant]
  16. NORTRIPTYLINE HCL [Concomitant]
  17. MONODOX [Concomitant]
  18. ESTRATEST H.S. [Concomitant]
  19. CEPHALEXIN [Concomitant]
  20. ZYRTEC [Concomitant]
  21. CLOBETASOL [Concomitant]
  22. NEURONTIN [Concomitant]
  23. MAXALT [Concomitant]
  24. PREMARIN [Concomitant]
  25. ZANTAC [Concomitant]
  26. ASPIRIN [Concomitant]
  27. CARAFATE [Concomitant]
  28. ATACAND [Concomitant]
  29. AXERT [Concomitant]
  30. FIORICET W/ CODEINE [Concomitant]

REACTIONS (33)
  - ANXIETY [None]
  - ASTHENIA [None]
  - BLEPHAROSPASM [None]
  - BURNING SENSATION [None]
  - DIFFICULTY IN WALKING [None]
  - DROOLING [None]
  - DRUG INEFFECTIVE [None]
  - DYSARTHRIA [None]
  - EXOSTOSIS [None]
  - EYE INFLAMMATION [None]
  - EYELID PTOSIS [None]
  - FACIAL NERVE DISORDER [None]
  - FACIAL PALSY [None]
  - FACIAL SPASM [None]
  - FEELING ABNORMAL [None]
  - FOREIGN BODY SENSATION IN EYES [None]
  - HEADACHE [None]
  - HERPES ZOSTER [None]
  - HYPOAESTHESIA [None]
  - INTERVERTEBRAL DISC PROTRUSION [None]
  - MUSCLE DISORDER [None]
  - MUSCLE TWITCHING [None]
  - MUSCULAR WEAKNESS [None]
  - MUSCULOSKELETAL STIFFNESS [None]
  - NECK PAIN [None]
  - NERVE COMPRESSION [None]
  - NEUROLOGICAL SYMPTOM [None]
  - NEUROPATHY PERIPHERAL [None]
  - PHOTOSENSITIVITY REACTION [None]
  - ROAD TRAFFIC ACCIDENT [None]
  - SHOULDER PAIN [None]
  - SPINAL OSTEOARTHRITIS [None]
  - TOOTH DISORDER [None]
